FAERS Safety Report 14303771 (Version 1)
Quarter: 2017Q4

REPORT INFORMATION
  Report Type: Spontaneous
  Country: BG (occurrence: BG)
  Receive Date: 20171219
  Receipt Date: 20171219
  Transmission Date: 20180321
  Serious: Yes (Death, Hospitalization, Other)
  Sender: FDA-Public Use
  Company Number: BG-OTSUKA-DJ20080749

PATIENT
  Age: 26 Year
  Sex: Female

DRUGS (4)
  1. ABILIFY [Suspect]
     Active Substance: ARIPIPRAZOLE
     Indication: SCHIZOPHRENIA
     Dosage: 15 MG, UNK
     Route: 048
     Dates: start: 200609, end: 2007
  2. ABILIFY [Suspect]
     Active Substance: ARIPIPRAZOLE
     Dosage: 15 MG, UNK
     Route: 048
     Dates: start: 200708, end: 200712
  3. ABILIFY [Suspect]
     Active Substance: ARIPIPRAZOLE
     Dosage: 30 MG, UNK
     Route: 048
     Dates: start: 200706, end: 200707
  4. ABILIFY [Suspect]
     Active Substance: ARIPIPRAZOLE
     Dosage: 22.5 MG, UNK
     Route: 048
     Dates: start: 200801, end: 20080227

REACTIONS (7)
  - Syncope [Unknown]
  - Aspartate aminotransferase increased [Unknown]
  - Pulmonary embolism [Fatal]
  - Alanine aminotransferase increased [Unknown]
  - Hyperglycaemia [Unknown]
  - Leukocytosis [Unknown]
  - Respiratory depression [Unknown]

NARRATIVE: CASE EVENT DATE: 2008
